FAERS Safety Report 9215844 (Version 2)
Quarter: 2013Q2

REPORT INFORMATION
  Report Type: Spontaneous
  Country: ZA (occurrence: None)
  Receive Date: 20130403
  Receipt Date: 20130409
  Transmission Date: 20140414
  Serious: Yes (Hospitalization)
  Sender: FDA-Public Use
  Company Number: 2013-1321

PATIENT
  Age: 34 Year
  Sex: Female

DRUGS (2)
  1. DYSPORT [Suspect]
     Dosage: 1500 UNITES (1500 UNITS, 1 IN 1 CYCLE (S) , INTRAMUSCULAR
     Dates: start: 20130314, end: 20130314
  2. DYSPORT [Suspect]
     Dosage: 1500 UNITES (1500 UNITS, 1 IN 1 CYCLE (S) , INTRAMUSCULAR
     Dates: start: 20130314, end: 20130314

REACTIONS (12)
  - Diaphragm muscle weakness [None]
  - Muscle spasms [None]
  - Sinusitis [None]
  - Dizziness [None]
  - Muscular weakness [None]
  - Asthenia [None]
  - Feeling abnormal [None]
  - Lethargy [None]
  - Dyspnoea [None]
  - Vision blurred [None]
  - Dysarthria [None]
  - Disorientation [None]
